FAERS Safety Report 6883566-1 (Version None)
Quarter: 2010Q3

REPORT INFORMATION
  Report Type: 
  Country: None (occurrence: None)
  Receive Date: 20100708
  Receipt Date: 20100219
  Transmission Date: 20110219
  Serious: Yes (Other)
  Sender: FDA-Public Use
  Company Number: 2010022245

PATIENT
  Age: 47 Year
  Sex: Male
  Weight: 79.4 kg

DRUGS (1)
  1. CHANTIX [Suspect]
     Indication: SMOKING CESSATION THERAPY
     Dosage: ORAL
     Dates: start: 20070101, end: 20070101

REACTIONS (2)
  - HALLUCINATION, AUDITORY [None]
  - SEXUAL DYSFUNCTION [None]
